FAERS Safety Report 13115049 (Version 1)
Quarter: 2017Q1

REPORT INFORMATION
  Report Type: Spontaneous
  Country: US (occurrence: US)
  Receive Date: 20170113
  Receipt Date: 20170113
  Transmission Date: 20170428
  Serious: No
  Sender: FDA-Public Use
  Company Number: US-SHIRE-US201620464

PATIENT
  Age: 71 Year
  Sex: Female
  Weight: 46.71 kg

DRUGS (2)
  1. XIIDRA [Suspect]
     Active Substance: LIFITEGRAST
     Dosage: 1 GTT (OU), 2X/DAY:BID
     Route: 047
     Dates: start: 201612
  2. XIIDRA [Suspect]
     Active Substance: LIFITEGRAST
     Indication: DRY EYE
     Dosage: 1 GTT (OU), 1X/DAY:QD (QHS)
     Route: 047
     Dates: start: 201612

REACTIONS (3)
  - Instillation site pain [Unknown]
  - Inappropriate schedule of drug administration [Recovered/Resolved]
  - Visual impairment [Not Recovered/Not Resolved]

NARRATIVE: CASE EVENT DATE: 201612
